FAERS Safety Report 21102856 (Version 1)
Quarter: 2022Q3

REPORT INFORMATION
  Report Type: Spontaneous
  Country: US (occurrence: US)
  Receive Date: 20220720
  Receipt Date: 20220720
  Transmission Date: 20221027
  Serious: No
  Sender: FDA-Public Use
  Company Number: US-BRISTOL-MYERS SQUIBB COMPANY-2022-074938

PATIENT
  Age: 66 Year
  Sex: Male

DRUGS (1)
  1. REVLIMID [Suspect]
     Active Substance: LENALIDOMIDE
     Indication: Constipation
     Route: 065
     Dates: start: 20200309

REACTIONS (3)
  - Asthenia [Unknown]
  - Dyspnoea [Unknown]
  - Intentional product use issue [Unknown]
